FAERS Safety Report 20993353 (Version 1)
Quarter: 2022Q2

REPORT INFORMATION
  Report Type: Spontaneous
  Country: US (occurrence: US)
  Receive Date: 20220622
  Receipt Date: 20220622
  Transmission Date: 20220721
  Serious: No
  Sender: FDA-Public Use
  Company Number: US-VIIV HEALTHCARE LIMITED-US2022AMR092950

PATIENT

DRUGS (3)
  1. RILPIVIRINE [Suspect]
     Active Substance: RILPIVIRINE
     Indication: Product used for unknown indication
     Dosage: UNK 600 MG/900 MG
     Route: 065
  2. CABOTEGRAVIR [Suspect]
     Active Substance: CABOTEGRAVIR
     Indication: Product used for unknown indication
     Dosage: UNK 600 MG/900 MG
     Route: 065
  3. CABOTEGRAVIR [Suspect]
     Active Substance: CABOTEGRAVIR
     Route: 065

REACTIONS (1)
  - Wrong technique in device usage process [Unknown]
